FAERS Safety Report 15135998 (Version 2)
Quarter: 2018Q3

REPORT INFORMATION
  Report Type: Report from Study
  Country: US (occurrence: US)
  Receive Date: 20180712
  Receipt Date: 20180821
  Transmission Date: 20181010
  Serious: Yes (Hospitalization)
  Sender: FDA-Public Use
  Company Number: US-CLOVIS ONCOLOGY-CLO-2018-000834

PATIENT

DRUGS (3)
  1. RUCAPARIB [Suspect]
     Active Substance: RUCAPARIB
     Dosage: 600 MG, BID
     Route: 048
     Dates: start: 20180219
  2. RUCAPARIB [Suspect]
     Active Substance: RUCAPARIB
     Indication: PROSTATE CANCER
     Dosage: 400 MG, BID
     Route: 048
     Dates: start: 20180618, end: 20180703
  3. ELIQUIS [Concomitant]
     Active Substance: APIXABAN
     Indication: ATRIAL FIBRILLATION

REACTIONS (3)
  - Cardiac failure [Not Recovered/Not Resolved]
  - Acute kidney injury [Not Recovered/Not Resolved]
  - Fatigue [Not Recovered/Not Resolved]

NARRATIVE: CASE EVENT DATE: 20180703
